FAERS Safety Report 22283594 (Version 1)
Quarter: 2023Q2

REPORT INFORMATION
  Report Type: Spontaneous
  Country: US (occurrence: None)
  Receive Date: 20230503
  Receipt Date: 20230503
  Transmission Date: 20230721
  Serious: No
  Sender: FDA-Public Use
  Company Number: None

PATIENT
  Age: 51 Year
  Sex: Female
  Weight: 82.35 kg

DRUGS (2)
  1. UP AND UP ALLERGY RELIEF (LORATADINE) [Suspect]
     Active Substance: LORATADINE
     Indication: Multiple allergies
     Dosage: OTHER QUANTITY : 1 TABLET(S);?
     Route: 048
     Dates: end: 20230503
  2. ESTROGENS [Concomitant]
     Active Substance: ESTROGENS

REACTIONS (2)
  - Vitreous floaters [None]
  - Visual impairment [None]

NARRATIVE: CASE EVENT DATE: 20130503
